FAERS Safety Report 8312924-3 (Version None)
Quarter: 2012Q2

REPORT INFORMATION
  Report Type: 
  Country: None (occurrence: None)
  Receive Date: 20120424
  Receipt Date: 20120420
  Transmission Date: 20120825
  Serious: Yes (Death, Hospitalization)
  Sender: FDA-Public Use
  Company Number: SP05673

PATIENT
  Age: 65 Year
  Sex: Female

DRUGS (1)
  1. XIFAXAN [Suspect]
     Dosage: 1100 MG (550 MG, 2 IN 1 D),ORAL
     Route: 048
     Dates: start: 20111101

REACTIONS (2)
  - HEPATIC CIRRHOSIS [None]
  - RENAL FAILURE [None]
